FAERS Safety Report 17791165 (Version 3)
Quarter: 2020Q2

REPORT INFORMATION
  Report Type: Spontaneous
  Country: BR (occurrence: BR)
  Receive Date: 20200515
  Receipt Date: 20200609
  Transmission Date: 20200714
  Serious: Yes (Other)
  Sender: FDA-Public Use
  Company Number: BR-PFIZER INC-2020193432

PATIENT
  Age: 21 Year
  Sex: Female
  Weight: 79 kg

DRUGS (2)
  1. DEPO-PROVERA [Suspect]
     Active Substance: MEDROXYPROGESTERONE ACETATE
     Indication: CONTRACEPTION
     Dosage: 1 APPLICATION EVERY 3 MONTHS
     Dates: start: 20191220, end: 20191220
  2. DEPO-PROVERA [Suspect]
     Active Substance: MEDROXYPROGESTERONE ACETATE
     Dosage: 1 APPLICATION EVERY 3 MONTHS
     Dates: start: 20200315

REACTIONS (5)
  - Amenorrhoea [Recovered/Resolved]
  - Menstruation irregular [Not Recovered/Not Resolved]
  - Discomfort [Not Recovered/Not Resolved]
  - Thrombosis [Not Recovered/Not Resolved]
  - Haemorrhage [Not Recovered/Not Resolved]

NARRATIVE: CASE EVENT DATE: 2020
